FAERS Safety Report 10465941 (Version 2)
Quarter: 2014Q3

REPORT INFORMATION
  Report Type: Report from Study
  Country: JP (occurrence: JP)
  Receive Date: 20140922
  Receipt Date: 20140922
  Transmission Date: 20150326
  Serious: Yes (Hospitalization, Other)
  Sender: FDA-Public Use
  Company Number: JP-ORION CORPORATION ORION PHARMA-ENT 2010-0014

PATIENT
  Age: 86 Year
  Sex: Female
  Weight: 40 kg

DRUGS (7)
  1. PERMAX [Concomitant]
     Active Substance: PERGOLIDE
     Route: 065
     Dates: start: 20080208, end: 20081110
  2. COMTAN [Suspect]
     Active Substance: ENTACAPONE
     Indication: DRUG EFFECT DECREASED
     Route: 048
     Dates: start: 20081125, end: 20090321
  3. DIHYDERGOT [Concomitant]
     Route: 065
     Dates: start: 20080313, end: 20090321
  4. LEVODOPA BENSERAZIDE [Concomitant]
     Active Substance: BENSERAZIDE\LEVODOPA
     Route: 065
     Dates: start: 20030910, end: 20090321
  5. GASMOTIN [Concomitant]
     Active Substance: MOSAPRIDE CITRATE
     Route: 065
     Dates: start: 20030910, end: 20090321
  6. LUVOX [Concomitant]
     Active Substance: FLUVOXAMINE MALEATE
     Route: 065
     Dates: start: 20050310, end: 20090321
  7. COMTAN [Suspect]
     Active Substance: ENTACAPONE
     Indication: PARKINSON^S DISEASE

REACTIONS (4)
  - Femoral neck fracture [Unknown]
  - Urinary tract infection [Unknown]
  - Fall [Unknown]
  - Pleural effusion [Unknown]

NARRATIVE: CASE EVENT DATE: 20090321
